FAERS Safety Report 5713593-9 (Version None)
Quarter: 2008Q2

REPORT INFORMATION
  Report Type: 
  Country: None (occurrence: None)
  Receive Date: 20080418
  Receipt Date: 20080407
  Transmission Date: 20081010
  Serious: Yes (Other)
  Sender: FDA-Public Use
  Company Number: US023232

PATIENT
  Sex: Male

DRUGS (1)
  1. PROVIGIL [Suspect]
     Dosage: ORAL
     Route: 048

REACTIONS (9)
  - CONVULSION [None]
  - DYSPNOEA [None]
  - DYSSTASIA [None]
  - FALL [None]
  - PHARMACEUTICAL PRODUCT COMPLAINT [None]
  - SYNCOPE [None]
  - THERAPEUTIC AGENT TOXICITY [None]
  - THERAPEUTIC PRODUCT CONTAMINATION [None]
  - TOOTH FRACTURE [None]
